FAERS Safety Report 8468201-3 (Version None)
Quarter: 2012Q2

REPORT INFORMATION
  Report Type: 
  Country: None (occurrence: None)
  Receive Date: 20120626
  Receipt Date: 20120620
  Transmission Date: 20120825
  Serious: Yes (Death)
  Sender: FDA-Public Use
  Company Number: IT-PFIZER INC-2012149262

PATIENT
  Age: 78 Year
  Sex: Female

DRUGS (7)
  1. TYGACIL [Suspect]
     Indication: PNEUMONIA
     Dosage: 100 MG, 1X/DAY
     Route: 042
     Dates: start: 20120506, end: 20120518
  2. ATORVASTATIN [Concomitant]
  3. ALLOPURINOL [Concomitant]
     Dosage: 300 MG, UNK
     Route: 048
  4. DILTIAZEM [Concomitant]
  5. PREGABALIN [Concomitant]
  6. FLUCONAZOLE [Concomitant]
     Dosage: 100 MG, UNK
     Dates: start: 20120509
  7. MERREM [Concomitant]
     Dosage: 1 G, UNK
     Route: 042
     Dates: start: 20120509

REACTIONS (1)
  - HEPATITIS ACUTE [None]
